FAERS Safety Report 8583846 (Version 3)
Quarter: 2012Q4

REPORT INFORMATION
  Report Type: 
  Country: US (occurrence: US)
  Receive Date: 20120529
  Receipt Date: 20120918
  Transmission Date: 20130627
  Serious: Yes (Other)
  Sender: FDA-Public Use
  Company Number: US-ASTRAZENECA-2012SE32304

PATIENT
  Age: 58 Year
  Sex: Male

DRUGS (1)
  1. NEXIUM [Suspect]
     Route: 048

REACTIONS (9)
  - Loss of consciousness [Unknown]
  - Sinusitis [Unknown]
  - Eye disorder [Unknown]
  - Gastrooesophageal reflux disease [Unknown]
  - Multiple fractures [Unknown]
  - Osteoporosis [Unknown]
  - Drug dose omission [Unknown]
  - Anxiety [Unknown]
  - Depression [Unknown]
